FAERS Safety Report 7770313-4 (Version None)
Quarter: 2011Q3

REPORT INFORMATION
  Report Type: 
  Country: None (occurrence: None)
  Receive Date: 20110922
  Receipt Date: 20110331
  Transmission Date: 20111222
  Serious: Yes (Other)
  Sender: FDA-Public Use
  Company Number: US-ASTRAZENECA-2011SE18476

PATIENT
  Age: 64 Year
  Sex: Male
  Weight: 86.2 kg

DRUGS (5)
  1. ZYPREXA [Concomitant]
     Route: 048
  2. CELEXA [Concomitant]
     Indication: DEPRESSION
     Route: 048
  3. CLONOPIN [Concomitant]
     Indication: ANXIETY
     Route: 048
  4. SEROQUEL XR [Suspect]
     Indication: BIPOLAR DISORDER
     Route: 048
     Dates: start: 20101001
  5. LAMICTAL [Concomitant]
     Route: 048

REACTIONS (1)
  - CONSTIPATION [None]
